FAERS Safety Report 24752881 (Version 2)
Quarter: 2024Q4

REPORT INFORMATION
  Report Type: Spontaneous
  Country: US (occurrence: US)
  Receive Date: 20241219
  Receipt Date: 20241224
  Transmission Date: 20250115
  Serious: Yes (Hospitalization)
  Sender: TORRENT PHARMA INC.
  Company Number: US-TORRENT-00013903

PATIENT
  Age: 44 Year
  Sex: Female

DRUGS (2)
  1. ESCITALOPRAM [Interacting]
     Active Substance: ESCITALOPRAM OXALATE
     Indication: Bipolar disorder
     Dosage: TWO MONTH PRIOR
     Route: 065
  2. DESMOPRESSIN [Interacting]
     Active Substance: DESMOPRESSIN
     Indication: Diabetes insipidus
     Dosage: WITH FEW DOSE CHANGES
     Route: 045
     Dates: start: 2007

REACTIONS (3)
  - Hyponatraemia [Recovered/Resolved]
  - Polyuria [Recovering/Resolving]
  - Drug interaction [Unknown]
